FAERS Safety Report 10403128 (Version 2)
Quarter: 2014Q3

REPORT INFORMATION
  Report Type: Spontaneous
  Country: US (occurrence: US)
  Receive Date: 20140822
  Receipt Date: 20140822
  Transmission Date: 20150326
  Serious: Yes (Death, Hospitalization)
  Sender: FDA-Public Use
  Company Number: US-GLAXOSMITHKLINE-A0886937A

PATIENT
  Sex: Male

DRUGS (1)
  1. AVANDIA [Suspect]
     Active Substance: ROSIGLITAZONE MALEATE
     Indication: DIABETES MELLITUS
     Dates: start: 200307, end: 200408

REACTIONS (11)
  - Pleural effusion [Unknown]
  - Arrhythmia [Unknown]
  - Tachycardia [Unknown]
  - Cerebrovascular accident [Fatal]
  - Atrial flutter [Unknown]
  - Cardiac failure congestive [Unknown]
  - Transient ischaemic attack [Unknown]
  - Hemiplegia [Unknown]
  - Atrioventricular block [Unknown]
  - Multi-organ failure [Fatal]
  - Coronary artery disease [Unknown]
